FAERS Safety Report 21536606 (Version 3)
Quarter: 2022Q4

REPORT INFORMATION
  Report Type: Spontaneous
  Country: GB (occurrence: GB)
  Receive Date: 20221101
  Receipt Date: 20221207
  Transmission Date: 20230112
  Serious: Yes (Hospitalization, Other)
  Sender: FDA-Public Use
  Company Number: GB-BAXTER-2022BAX021446

PATIENT
  Age: 7 Year
  Sex: Female
  Weight: 21 kg

DRUGS (31)
  1. CLOBAZAM [Suspect]
     Active Substance: CLOBAZAM
     Indication: Epilepsy
     Dosage: UNK
     Route: 065
     Dates: start: 201910
  2. CLONIDINE [Suspect]
     Active Substance: CLONIDINE
     Indication: Sleep disorder
     Dosage: UNK
     Route: 065
     Dates: start: 20210101
  3. MELATONIN [Suspect]
     Active Substance: MELATONIN
     Indication: Sleep disorder
     Dosage: UNK
     Route: 065
     Dates: start: 202008
  4. MIDAZOLAM [Suspect]
     Active Substance: MIDAZOLAM
     Indication: Sedative therapy
     Dosage: (WITH THIRD DOSE OF STUDY DRUG) DOSE AND FREQUENCY NOT REPORTED; ;
     Route: 065
     Dates: start: 20220307, end: 20220307
  5. MIDAZOLAM [Suspect]
     Active Substance: MIDAZOLAM
     Dosage: (WITH FOURTH DOSE OF STUDY DRUG) DOSE AND FREQUENCY NOT REPORTED; ;
     Route: 065
     Dates: start: 20220404, end: 20220404
  6. MIDAZOLAM [Suspect]
     Active Substance: MIDAZOLAM
     Dosage: (WITH SIXTH DOSE OF STUDY DRUG) DOSE AND FREQUENCY NOT REPORTED; ;
     Route: 065
     Dates: start: 20220926, end: 20220926
  7. MIDAZOLAM [Suspect]
     Active Substance: MIDAZOLAM
     Dosage: (WITH SECOND DOSE OF STUDY DRUG) DOSE AND FREQUENCY NOT REPORTED; ;
     Route: 065
     Dates: start: 20220207, end: 20220207
  8. MIDAZOLAM [Suspect]
     Active Substance: MIDAZOLAM
     Dosage: (WITH FIFTH DOSE OF STUDY DRUG) DOSE AND FREQUENCY NOT REPORTED; ;
     Route: 065
     Dates: start: 20220627, end: 20220627
  9. ACETAMINOPHEN [Suspect]
     Active Substance: ACETAMINOPHEN
     Indication: Constipation
     Dosage: UNK
     Route: 065
     Dates: start: 20220120
  10. ACETAMINOPHEN [Suspect]
     Active Substance: ACETAMINOPHEN
     Indication: Pain
  11. PROPOFOL [Suspect]
     Active Substance: PROPOFOL
     Indication: Sedative therapy
     Dosage: FOURTH DOSE; ;
     Route: 065
     Dates: start: 20220404, end: 20220404
  12. PROPOFOL [Suspect]
     Active Substance: PROPOFOL
     Dosage: SECOND DOSE;
     Route: 065
     Dates: start: 20220207, end: 20220207
  13. PROPOFOL [Suspect]
     Active Substance: PROPOFOL
     Dosage: FIRST DOSE; ;
     Route: 065
     Dates: start: 20220110, end: 20220110
  14. PROPOFOL [Suspect]
     Active Substance: PROPOFOL
     Dosage: FIFTH DOSE; ;
     Route: 065
     Dates: start: 20220627, end: 20220627
  15. PROPOFOL [Suspect]
     Active Substance: PROPOFOL
     Dosage: SIXTH DOSE; ;
     Route: 065
     Dates: start: 20220926, end: 20220926
  16. PROPOFOL [Suspect]
     Active Substance: PROPOFOL
     Dosage: THIRD DOSE;
     Route: 065
     Dates: start: 20220307, end: 20220307
  17. ZONISAMIDE [Suspect]
     Active Substance: ZONISAMIDE
     Indication: Epilepsy
     Dosage: UNK
     Route: 065
     Dates: start: 20220524
  18. ZONISAMIDE [Suspect]
     Active Substance: ZONISAMIDE
     Dosage: UNK
     Route: 065
     Dates: start: 20220903
  19. ALFENTANIL [Suspect]
     Active Substance: ALFENTANIL
     Indication: Sedative therapy
     Dosage: FIRST DOSE; ;
     Route: 065
     Dates: start: 20220110, end: 20220110
  20. ALFENTANIL [Suspect]
     Active Substance: ALFENTANIL
     Dosage: SECOND DOSE; ;
     Route: 065
     Dates: start: 20220207, end: 20220207
  21. ALFENTANIL [Suspect]
     Active Substance: ALFENTANIL
     Dosage: THIRD DOSE;
     Route: 065
     Dates: start: 20220307, end: 20220307
  22. ALFENTANIL [Suspect]
     Active Substance: ALFENTANIL
     Dosage: SIXTH DOSE; ;
     Route: 065
     Dates: start: 20220926, end: 20220926
  23. ALFENTANIL [Suspect]
     Active Substance: ALFENTANIL
     Dosage: FOURTH DOSE; ;
     Route: 065
     Dates: start: 20220404, end: 20220404
  24. ALFENTANIL [Suspect]
     Active Substance: ALFENTANIL
     Dosage: FIFTH DOSE; ;
     Route: 065
     Dates: start: 20220627, end: 20220627
  25. SEVOFLURANE [Suspect]
     Active Substance: SEVOFLURANE
     Indication: Sedative therapy
     Dosage: UNK %, FIRST DOSE; ;
     Route: 065
     Dates: start: 20220110, end: 20220110
  26. SEVOFLURANE [Suspect]
     Active Substance: SEVOFLURANE
     Indication: Anaesthesia procedure
     Dosage: 2.6 %, SINGLE, THIRD DOSE; ;
     Route: 065
     Dates: start: 20220307, end: 20220307
  27. SEVOFLURANE [Suspect]
     Active Substance: SEVOFLURANE
     Dosage: UNK %, SINGLE, FIFTH DOSE; ;
     Route: 065
     Dates: start: 20220627, end: 20220627
  28. SEVOFLURANE [Suspect]
     Active Substance: SEVOFLURANE
     Dosage: UNK %, SINGLE, SIXTH DOSE; ;
     Route: 065
     Dates: start: 20220926, end: 20220926
  29. SEVOFLURANE [Suspect]
     Active Substance: SEVOFLURANE
     Dosage: UNK %, SINGLE, SECOND DOSE; ;
     Route: 065
     Dates: start: 20220207, end: 20220207
  30. SEVOFLURANE [Suspect]
     Active Substance: SEVOFLURANE
     Dosage: UNK %, SINGLE, FOURTH DOSE; ;
     Route: 065
     Dates: start: 20220404, end: 20220404
  31. NITROUS OXIDE [Suspect]
     Active Substance: NITROUS OXIDE
     Indication: Sedative therapy
     Dosage: UNK
     Route: 065
     Dates: start: 20220110

REACTIONS (2)
  - Epilepsy with myoclonic-atonic seizures [Recovered/Resolved]
  - Change in seizure presentation [Recovered/Resolved]

NARRATIVE: CASE EVENT DATE: 20220926
